FAERS Safety Report 13083928 (Version 1)
Quarter: 2017Q1

REPORT INFORMATION
  Report Type: Spontaneous
  Country: US (occurrence: US)
  Receive Date: 20170104
  Receipt Date: 20170104
  Transmission Date: 20170428
  Serious: No
  Sender: FDA-Public Use
  Company Number: US-BAYER-2017-001285

PATIENT
  Age: 72 Year
  Sex: Female
  Weight: 82 kg

DRUGS (1)
  1. ALEVE [Suspect]
     Active Substance: NAPROXEN SODIUM
     Indication: PAIN
     Route: 048

REACTIONS (3)
  - Device use issue [Unknown]
  - Drug ineffective [Unknown]
  - Back pain [Recovered/Resolved]
